FAERS Safety Report 7383592-2 (Version None)
Quarter: 2011Q1

REPORT INFORMATION
  Report Type: 
  Country: None (occurrence: None)
  Receive Date: 20110330
  Receipt Date: 20110322
  Transmission Date: 20110831
  Serious: Yes (Other)
  Sender: FDA-Public Use
  Company Number: US-JNJFOC-20110310196

PATIENT
  Age: 30 Year
  Sex: Female
  Weight: 60.78 kg

DRUGS (2)
  1. ZYRTEC [Suspect]
     Route: 048
  2. ZYRTEC [Suspect]
     Indication: MULTIPLE ALLERGIES
     Route: 048

REACTIONS (3)
  - PHOTOSENSITIVITY REACTION [None]
  - SUNBURN [None]
  - BURNS THIRD DEGREE [None]
